FAERS Safety Report 17028180 (Version 1)
Quarter: 2019Q4

REPORT INFORMATION
  Report Type: Spontaneous
  Country: JP (occurrence: JP)
  Receive Date: 20191113
  Receipt Date: 20191113
  Transmission Date: 20200122
  Serious: Yes (Other)
  Sender: FDA-Public Use
  Company Number: NVSJ2019JP002641

PATIENT
  Age: 74 Year
  Sex: Male

DRUGS (2)
  1. EVEROLIMUS. [Suspect]
     Active Substance: EVEROLIMUS
     Indication: BLADDER CANCER
     Dosage: 10 MG
     Route: 065
     Dates: start: 20190422, end: 20190509
  2. EVEROLIMUS. [Suspect]
     Active Substance: EVEROLIMUS
     Indication: METASTASES TO LYMPH NODES
     Dosage: 10 MG
     Route: 065
     Dates: start: 20190523

REACTIONS (8)
  - Bladder cancer [Unknown]
  - Malignant neoplasm progression [Unknown]
  - Metastases to lymph nodes [Unknown]
  - Stomatitis [Recovering/Resolving]
  - Product use in unapproved indication [Unknown]
  - Renal impairment [Unknown]
  - Hydronephrosis [Unknown]
  - Urine output decreased [Unknown]

NARRATIVE: CASE EVENT DATE: 20190422
